FAERS Safety Report 7825845 (Version 5)
Quarter: 2013Q4

REPORT INFORMATION
  Report Type: Spontaneous
  Country: US (occurrence: US)
  Receive Date: 20110224
  Receipt Date: 20131231
  Transmission Date: 20140711
  Serious: Yes (Hospitalization, Other)
  Sender: FDA-Public Use
  Company Number: US-BAYER-2011-015875

PATIENT
  Age: 38 Year
  Sex: Female
  Weight: 81.63 kg

DRUGS (5)
  1. YAZ [Suspect]
     Indication: CONTRACEPTION
  2. LOESTRIN FE [Concomitant]
  3. BENADRYL ALLERGY + SINUS [DIPHENHYDR HCL,PSEUDOEPH HCL] [Concomitant]
     Dosage: 2 CAPLETS, QD
     Route: 048
     Dates: start: 20091102
  4. METROGEL-VAGINAL [METRONIDAZOLE] [Concomitant]
     Dosage: 1 APPLICATIONFUL (37.5 MG) [AS WRITTEN] QD AT BEDTIME
     Route: 067
     Dates: start: 20091102
  5. ALDARA [Concomitant]
     Dosage: APPLY TO THE AFFECTED AREA BEFORE BEDTIME 3 TIMES PER WEEK AND LEAVE ON SKIN FOR 6 TO 10 HOURS
     Route: 061
     Dates: start: 20091102

REACTIONS (10)
  - Deep vein thrombosis [None]
  - Pulmonary embolism [None]
  - Myocardial infarction [None]
  - Gallbladder disorder [None]
  - Cerebrovascular accident [None]
  - Injury [None]
  - Pain [None]
  - Anxiety [None]
  - Fear [None]
  - Mental disorder [None]
